FAERS Safety Report 11046497 (Version 1)
Quarter: 2015Q2

REPORT INFORMATION
  Report Type: Spontaneous
  Country: US (occurrence: US)
  Receive Date: 20150420
  Receipt Date: 20150420
  Transmission Date: 20150821
  Serious: No
  Sender: FDA-Public Use
  Company Number: US-TEVA-469232USA

PATIENT
  Sex: Male

DRUGS (9)
  1. KCL [Concomitant]
     Active Substance: POTASSIUM CHLORIDE
  2. TAMSULOSIN [Concomitant]
     Active Substance: TAMSULOSIN
  3. NICOTINIC ACID [Suspect]
     Active Substance: NIACIN
  4. MICARDIS [Concomitant]
     Active Substance: TELMISARTAN
  5. WARFARIN [Suspect]
     Active Substance: WARFARIN
  6. SYNTHROID [Concomitant]
     Active Substance: LEVOTHYROXINE SODIUM
  7. AVODART [Concomitant]
     Active Substance: DUTASTERIDE
  8. TRAMADOL HCL [Concomitant]
     Active Substance: TRAMADOL HYDROCHLORIDE
  9. METOPROLOL [Concomitant]
     Active Substance: METOPROLOL

REACTIONS (1)
  - International normalised ratio increased [Unknown]
